FAERS Safety Report 7272265-2 (Version None)
Quarter: 2011Q1

REPORT INFORMATION
  Report Type: 
  Country: None (occurrence: None)
  Receive Date: 20110203
  Receipt Date: 20110124
  Transmission Date: 20110831
  Serious: Yes (Hospitalization, Other)
  Sender: FDA-Public Use
  Company Number: PHHY2010AU83280

PATIENT
  Sex: Male

DRUGS (1)
  1. GLEEVEC [Suspect]
     Dosage: 800 MG, UNK

REACTIONS (8)
  - GASTROOESOPHAGEAL REFLUX DISEASE [None]
  - NAUSEA [None]
  - CHEST PAIN [None]
  - FATIGUE [None]
  - MALAISE [None]
  - MYOCARDITIS [None]
  - PERICARDITIS [None]
  - INFLUENZA LIKE ILLNESS [None]
